FAERS Safety Report 6329486-2 (Version None)
Quarter: 2009Q3

REPORT INFORMATION
  Report Type: 
  Country: None (occurrence: None)
  Receive Date: 20090826
  Receipt Date: 20090818
  Transmission Date: 20100115
  Serious: Yes (Other)
  Sender: FDA-Public Use
  Company Number: US-GENENTECH-288956

PATIENT
  Age: 20 Year
  Sex: Male
  Weight: 70.748 kg

DRUGS (5)
  1. XOLAIR [Suspect]
     Indication: DRUG USE FOR UNKNOWN INDICATION
     Dosage: 375 MG, Q2W
     Dates: start: 20090805, end: 20090805
  2. SINGULAIR [Concomitant]
     Indication: DRUG USE FOR UNKNOWN INDICATION
  3. ADVAIR HFA [Concomitant]
     Indication: DRUG USE FOR UNKNOWN INDICATION
  4. XOPENEX [Concomitant]
     Indication: DRUG USE FOR UNKNOWN INDICATION
  5. ZYRTEC [Concomitant]
     Indication: DRUG USE FOR UNKNOWN INDICATION

REACTIONS (3)
  - ANGIOEDEMA [None]
  - SNEEZING [None]
  - WHEEZING [None]
